FAERS Safety Report 6979665-6 (Version None)
Quarter: 2010Q3

REPORT INFORMATION
  Report Type: 
  Country: None (occurrence: None)
  Receive Date: 20100908
  Receipt Date: 20100825
  Transmission Date: 20110219
  Serious: Yes (Death, Hospitalization)
  Sender: FDA-Public Use
  Company Number: A-CH2010-39300

PATIENT
  Age: 51 Year
  Sex: Female
  Weight: 53 kg

DRUGS (4)
  1. TRACLEER [Suspect]
     Indication: PULMONARY HYPERTENSION
     Dosage: 62.5 MG, BID, ORAL
     Route: 048
  2. SILDENAFIL CITRATE [Concomitant]
  3. PROSTAGLANDIN I2 (EPOPROSTENOL) [Concomitant]
  4. HEPARIN [Concomitant]

REACTIONS (6)
  - GASTROINTESTINAL HAEMORRHAGE [None]
  - MELAENA [None]
  - NO THERAPEUTIC RESPONSE [None]
  - PULMONARY HAEMORRHAGE [None]
  - RESPIRATORY TRACT HAEMORRHAGE [None]
  - SHOCK HAEMORRHAGIC [None]
